FAERS Safety Report 11691299 (Version 1)
Quarter: 2015Q4

REPORT INFORMATION
  Report Type: Spontaneous
  Country: US (occurrence: US)
  Receive Date: 20151102
  Receipt Date: 20151102
  Transmission Date: 20160304
  Serious: Yes (Hospitalization)
  Sender: FDA-Public Use
  Company Number: US-JNJFOC-20151022925

PATIENT
  Sex: Female

DRUGS (2)
  1. OXYCODONE AND ACETAMINOPHEN [Suspect]
     Active Substance: ACETAMINOPHEN\OXYCODONE\OXYCODONE HYDROCHLORIDE
     Indication: PRODUCT USED FOR UNKNOWN INDICATION
     Route: 065
  2. XARELTO [Suspect]
     Active Substance: RIVAROXABAN
     Indication: OVARIAN VEIN THROMBOSIS
     Route: 048

REACTIONS (7)
  - Hospitalisation [Unknown]
  - Incorrect dose administered [Unknown]
  - Ovarian cyst [Unknown]
  - Off label use [Unknown]
  - Liver disorder [Unknown]
  - Asthenia [Unknown]
  - Product use issue [Unknown]

NARRATIVE: CASE EVENT DATE: 2015
